FAERS Safety Report 6469198-8 (Version None)
Quarter: 2009Q4

REPORT INFORMATION
  Report Type: 
  Country: None (occurrence: None)
  Receive Date: 20091203
  Receipt Date: 20071114
  Transmission Date: 20100525
  Serious: No
  Sender: FDA-Public Use
  Company Number: US-ELI_LILLY_AND_COMPANY-US200709003527

PATIENT
  Sex: Male
  Weight: 117.91 kg

DRUGS (4)
  1. BYETTA [Suspect]
     Indication: DIABETES MELLITUS
     Dosage: 5 UG, 2/D
     Route: 058
     Dates: start: 20070701, end: 20070821
  2. BYETTA [Suspect]
     Dosage: 10 UG, 2/D
     Route: 058
     Dates: start: 20070822
  3. METFORMIN HCL [Concomitant]
     Indication: DIABETES MELLITUS
     Dosage: 500 MG, 4/D
     Dates: start: 20070101
  4. VYTORIN [Concomitant]
     Indication: BLOOD CHOLESTEROL INCREASED
     Dosage: UNK, UNKNOWN

REACTIONS (8)
  - ABDOMINAL DISCOMFORT [None]
  - ALANINE AMINOTRANSFERASE INCREASED [None]
  - ASPARTATE AMINOTRANSFERASE INCREASED [None]
  - CONSTIPATION [None]
  - CONTRAST MEDIA REACTION [None]
  - INCORRECT DOSE ADMINISTERED [None]
  - TESTICULAR PAIN [None]
  - WEIGHT DECREASED [None]
